FAERS Safety Report 6857074-8 (Version None)
Quarter: 2010Q3

REPORT INFORMATION
  Report Type: 
  Country: None (occurrence: None)
  Receive Date: 20100719
  Receipt Date: 20100712
  Transmission Date: 20110219
  Serious: Yes (Other)
  Sender: FDA-Public Use
  Company Number: A0870944A

PATIENT
  Age: 48 Year
  Sex: Female

DRUGS (5)
  1. FLONASE [Suspect]
     Indication: PRODUCT USED FOR UNKNOWN INDICATION
     Route: 045
     Dates: end: 20100401
  2. OMNARIS [Suspect]
     Indication: UPPER-AIRWAY COUGH SYNDROME
     Dosage: 200MCG AS REQUIRED
     Route: 045
     Dates: start: 20100401
  3. LISINOPRIL [Concomitant]
  4. ESTROGEN [Concomitant]
  5. ASPIRIN [Concomitant]

REACTIONS (3)
  - DRY EYE [None]
  - VISION BLURRED [None]
  - VISUAL ACUITY REDUCED [None]
